FAERS Safety Report 25987090 (Version 2)
Quarter: 2025Q4

REPORT INFORMATION
  Report Type: Report from Study
  Country: EU (occurrence: EU)
  Receive Date: 20251103
  Receipt Date: 20251113
  Transmission Date: 20260117
  Serious: Yes (Other)
  Sender: EMD SERONO INC
  Company Number: EU-Merck Healthcare KGaA-2025004156

PATIENT
  Age: 32 Year
  Sex: Female

DRUGS (2)
  1. MAVENCLAD [Suspect]
     Active Substance: CLADRIBINE
     Indication: Relapsing-remitting multiple sclerosis
     Dosage: YEAR ONE WEEK ONE THERAPY: AT A DOSE OF 2 TABLETS ON DAYS 1 TO 4 AND 1 TABLET ON DAY 5
     Dates: start: 20240708
  2. MAVENCLAD [Suspect]
     Active Substance: CLADRIBINE
     Dosage: YEAR ONE WEEK FIVE THERAPY: AT A DOSE OF 2 TABLETS ON DAYS 1 TO 4 AND 1 TABLET ON DAY 5
     Dates: start: 20240805

REACTIONS (5)
  - Premature delivery [Recovered/Resolved]
  - Vomiting [Not Recovered/Not Resolved]
  - Live birth [Recovered/Resolved]
  - High risk pregnancy [Not Recovered/Not Resolved]
  - Maternal exposure before pregnancy [Recovered/Resolved]

NARRATIVE: CASE EVENT DATE: 20241201
